FAERS Safety Report 17111003 (Version 2)
Quarter: 2019Q4

REPORT INFORMATION
  Report Type: Spontaneous
  Country: JP (occurrence: JP)
  Receive Date: 20191204
  Receipt Date: 20191210
  Transmission Date: 20200122
  Serious: Yes (Death, Other)
  Sender: FDA-Public Use
  Company Number: NVSC2019JP056799

PATIENT
  Age: 34 Year
  Sex: Male

DRUGS (5)
  1. PAZOPANIB [Suspect]
     Active Substance: PAZOPANIB
     Indication: SYNOVIAL SARCOMA
     Dosage: UNK
     Route: 065
  2. TRABECTEDIN [Suspect]
     Active Substance: TRABECTEDIN
     Indication: SYNOVIAL SARCOMA
     Dosage: UNK UNK, CYCLIC (6 COURSES)
     Route: 065
  3. IFOSFAMIDE. [Suspect]
     Active Substance: IFOSFAMIDE
     Indication: SYNOVIAL SARCOMA
     Dosage: UNK UNK, CYCLIC (3 COURSES)
     Route: 065
  4. DOXORUBICIN [Suspect]
     Active Substance: DOXORUBICIN
     Indication: SYNOVIAL SARCOMA
     Dosage: UNK UNK, CYCLIC (3 COURSES)
     Route: 065
  5. ERIBULIN [Suspect]
     Active Substance: ERIBULIN
     Indication: SYNOVIAL SARCOMA
     Dosage: UNK
     Route: 065

REACTIONS (9)
  - Haemorrhage [Unknown]
  - Synovial sarcoma metastatic [Fatal]
  - Functional gastrointestinal disorder [Fatal]
  - Bladder dysfunction [Fatal]
  - Metastases to bone [Fatal]
  - Back pain [Fatal]
  - Paralysis [Fatal]
  - Malignant neoplasm progression [Fatal]
  - Metastases to lung [Fatal]
